FAERS Safety Report 25006840 (Version 1)
Quarter: 2025Q1

REPORT INFORMATION
  Report Type: Report from Study
  Country: CA (occurrence: CA)
  Receive Date: 20250225
  Receipt Date: 20250225
  Transmission Date: 20250409
  Serious: Yes (Hospitalization, Other)
  Sender: NOVARTIS
  Company Number: CA-002147023-NVSC2025CA021469

PATIENT
  Age: 55 Year
  Sex: Female
  Weight: 83.1 kg

DRUGS (2)
  1. TABRECTA [Suspect]
     Active Substance: CAPMATINIB
     Indication: Gallbladder cancer metastatic
     Dosage: 300 MG, QD
     Route: 048
     Dates: start: 20241213
  2. TABRECTA [Suspect]
     Active Substance: CAPMATINIB
     Route: 048
     Dates: end: 20250203

REACTIONS (4)
  - Nausea [Recovered/Resolved]
  - Vomiting [Recovered/Resolved]
  - Gallbladder cancer [Unknown]
  - Malignant neoplasm progression [Unknown]

NARRATIVE: CASE EVENT DATE: 20250101
